APPROVED DRUG PRODUCT: DONEPEZIL HYDROCHLORIDE
Active Ingredient: DONEPEZIL HYDROCHLORIDE
Strength: 23MG
Dosage Form/Route: TABLET;ORAL
Application: A202782 | Product #001 | TE Code: AB
Applicant: LUPIN LTD
Approved: Oct 30, 2015 | RLD: No | RS: No | Type: RX